FAERS Safety Report 11213076 (Version 2)
Quarter: 2015Q2

REPORT INFORMATION
  Report Type: Spontaneous
  Country: DE (occurrence: DE)
  Receive Date: 20150623
  Receipt Date: 20150629
  Transmission Date: 20150821
  Serious: Yes (Other)
  Sender: FDA-Public Use
  Company Number: DE-GILEAD-2015-0159329

PATIENT
  Age: 30 Year
  Sex: Female

DRUGS (1)
  1. VIREAD [Suspect]
     Active Substance: TENOFOVIR DISOPROXIL FUMARATE
     Indication: CHRONIC HEPATITIS B
     Dosage: UNK UNK, QD
     Route: 048
     Dates: start: 20120329

REACTIONS (3)
  - Drug ineffective [Unknown]
  - Liver function test abnormal [Not Recovered/Not Resolved]
  - Hepatitis B DNA assay positive [Not Recovered/Not Resolved]
